FAERS Safety Report 6257513-X (Version None)
Quarter: 2009Q3

REPORT INFORMATION
  Report Type: 
  Country: None (occurrence: None)
  Receive Date: 20090706
  Receipt Date: 20090624
  Transmission Date: 20100115
  Serious: Yes (Hospitalization)
  Sender: FDA-Public Use
  Company Number: AU-ASTRAZENECA-2009SE03370

PATIENT
  Age: 3668 Day
  Sex: Male

DRUGS (4)
  1. PRILOSEC [Suspect]
     Route: 048
     Dates: start: 20080101, end: 20081202
  2. TOPIRAMATE [Suspect]
     Indication: CONVULSION
     Route: 048
     Dates: start: 20050101, end: 20081202
  3. ZANTAC [Suspect]
     Route: 048
     Dates: start: 20050101, end: 20081202
  4. VIGABATRIN [Concomitant]
     Route: 048
     Dates: start: 19990101

REACTIONS (7)
  - ABDOMINAL PAIN [None]
  - BLOOD AMYLASE INCREASED [None]
  - CHOLECYSTITIS [None]
  - DECREASED APPETITE [None]
  - LIPASE INCREASED [None]
  - MALAISE [None]
  - VOMITING [None]
